FAERS Safety Report 23425823 (Version 1)
Quarter: 2024Q1

REPORT INFORMATION
  Report Type: Report from Study
  Country: US (occurrence: US)
  Receive Date: 20240122
  Receipt Date: 20240122
  Transmission Date: 20240410
  Serious: No
  Sender: FDA-Public Use
  Company Number: US-Accord-382502

PATIENT
  Age: 22 Year
  Sex: Male

DRUGS (1)
  1. CLOZAPINE [Suspect]
     Active Substance: CLOZAPINE
     Indication: Product used for unknown indication
     Dosage: HAD A GAP IN TREATMENT THAT STARTED ON 23-AUG-2023. RE-STARTING CLOZAPINE ORAL TABLETS ON 27-SEP-23
     Route: 048

REACTIONS (1)
  - Treatment noncompliance [Unknown]
